FAERS Safety Report 12896490 (Version 1)
Quarter: 2016Q4

REPORT INFORMATION
  Report Type: Spontaneous
  Country: US (occurrence: US)
  Receive Date: 20161031
  Receipt Date: 20161031
  Transmission Date: 20170207
  Serious: Yes (Other)
  Sender: FDA-Public Use
  Company Number: US-DRREDDYS-USA/USA/16/0084379

PATIENT
  Age: 15 Year
  Sex: Male

DRUGS (5)
  1. OLANZAPINE FILM-COATED TABLET [Suspect]
     Active Substance: OLANZAPINE
     Indication: PSYCHOTIC DISORDER
     Route: 065
  2. NALOXONE [Concomitant]
     Active Substance: NALOXONE
     Indication: VENTRICULAR TACHYCARDIA
     Route: 065
  3. DEXMEDETOMIDINE. [Concomitant]
     Active Substance: DEXMEDETOMIDINE
     Indication: SEDATIVE THERAPY
     Route: 065
  4. MIDAZOLAM [Concomitant]
     Active Substance: MIDAZOLAM\MIDAZOLAM HYDROCHLORIDE
     Indication: SEDATIVE THERAPY
     Route: 065
  5. FENTANYL. [Concomitant]
     Active Substance: FENTANYL
     Indication: SEDATIVE THERAPY
     Route: 065

REACTIONS (2)
  - Electrocardiogram QT prolonged [Recovering/Resolving]
  - Condition aggravated [Recovering/Resolving]
